FAERS Safety Report 6928685-6 (Version None)
Quarter: 2010Q3

REPORT INFORMATION
  Report Type: 
  Country: None (occurrence: None)
  Receive Date: 20100817
  Receipt Date: 20100811
  Transmission Date: 20110219
  Serious: Yes (Other)
  Sender: FDA-Public Use
  Company Number: A0874804A

PATIENT
  Sex: Male
  Weight: 54.5 kg

DRUGS (1)
  1. VALTREX [Suspect]
     Dosage: 2G PER DAY
     Route: 048
     Dates: start: 20100728, end: 20100728

REACTIONS (5)
  - ABNORMAL BEHAVIOUR [None]
  - CRYING [None]
  - FEAR OF DEATH [None]
  - HEADACHE [None]
  - NAUSEA [None]
